FAERS Safety Report 7984529-5 (Version None)
Quarter: 2011Q4

REPORT INFORMATION
  Report Type: 
  Country: None (occurrence: None)
  Receive Date: 20111216
  Receipt Date: 20111205
  Transmission Date: 20120403
  Serious: Yes (Hospitalization)
  Sender: FDA-Public Use
  Company Number: US-JNJFOC-20111203144

PATIENT
  Sex: Female
  Weight: 87.54 kg

DRUGS (1)
  1. REMICADE [Suspect]
     Indication: RHEUMATOID ARTHRITIS
     Route: 042

REACTIONS (3)
  - RENAL FAILURE CHRONIC [None]
  - HYPERHIDROSIS [None]
  - DRUG LEVEL INCREASED [None]
